FAERS Safety Report 19457768 (Version 1)
Quarter: 2021Q2

REPORT INFORMATION
  Report Type: Spontaneous
  Country: FR (occurrence: FR)
  Receive Date: 20210624
  Receipt Date: 20210624
  Transmission Date: 20210717
  Serious: Yes (Hospitalization)
  Sender: FDA-Public Use
  Company Number: FR-PFIZER INC-2021697873

PATIENT
  Age: 56 Year
  Sex: Female
  Weight: 82.4 kg

DRUGS (9)
  1. KARDEGIC [Concomitant]
     Active Substance: ASPIRIN DL-LYSINE
     Dosage: UNK
  2. ALPRAZOLAM. [Concomitant]
     Active Substance: ALPRAZOLAM
     Dosage: UNK
  3. PLAVIX [Concomitant]
     Active Substance: CLOPIDOGREL BISULFATE
     Dosage: UNK
  4. ATORVASTATIN CALCIUM. [Suspect]
     Active Substance: ATORVASTATIN CALCIUM
     Dosage: 40 MG, 1X/DAY
     Route: 048
  5. OMEPRAZOLE. [Concomitant]
     Active Substance: OMEPRAZOLE
     Dosage: UNK
  6. VENLAFAXINE [Concomitant]
     Active Substance: VENLAFAXINE HYDROCHLORIDE
     Dosage: UNK
  7. BISOPROLOL FUMARATE. [Concomitant]
     Active Substance: BISOPROLOL FUMARATE
     Dosage: UNK
  8. VAXZEVRIA [Suspect]
     Active Substance: AZD-1222
     Indication: COVID-19 IMMUNISATION
     Dosage: 1 DF, SINGLE
     Route: 030
     Dates: start: 20210313, end: 20210313
  9. TOPALGIC [Concomitant]
     Dosage: UNK

REACTIONS (1)
  - Linear IgA disease [Recovering/Resolving]

NARRATIVE: CASE EVENT DATE: 20210326
